FAERS Safety Report 5512214-8 (Version None)
Quarter: 2007Q4

REPORT INFORMATION
  Report Type: 
  Country: None (occurrence: None)
  Receive Date: 20071112
  Receipt Date: 20071031
  Transmission Date: 20080405
  Serious: Yes (Hospitalization)
  Sender: FDA-Public Use
  Company Number: PHBS2007JP17764

PATIENT
  Age: 36 Year
  Sex: Male

DRUGS (1)
  1. TEGRETOL [Suspect]
     Indication: EPILEPSY
     Route: 048
     Dates: end: 20050314

REACTIONS (9)
  - AGGRESSION [None]
  - AGITATION [None]
  - ANTICONVULSANT DRUG LEVEL INCREASED [None]
  - BRADYCARDIA [None]
  - C-REACTIVE PROTEIN INCREASED [None]
  - DIZZINESS [None]
  - DYSARTHRIA [None]
  - HYPOTHERMIA [None]
  - LIVER DISORDER [None]
